FAERS Safety Report 11946464 (Version 1)
Quarter: 2016Q1

REPORT INFORMATION
  Report Type: Spontaneous
  Country: US (occurrence: US)
  Receive Date: 20160125
  Receipt Date: 20160125
  Transmission Date: 20160526
  Serious: No
  Sender: FDA-Public Use
  Company Number: US-JNJFOC-20151204000

PATIENT
  Age: 38 Year
  Sex: Female
  Weight: 59.88 kg

DRUGS (1)
  1. WOMENS ROGAINE [Suspect]
     Active Substance: MINOXIDIL
     Indication: ALOPECIA
     Dosage: A FEW DROPS
     Route: 061
     Dates: start: 20151125, end: 20151201

REACTIONS (3)
  - Skin disorder [Recovering/Resolving]
  - Skin irritation [Recovering/Resolving]
  - Inappropriate schedule of drug administration [Recovering/Resolving]
